FAERS Safety Report 16358291 (Version 1)
Quarter: 2019Q2

REPORT INFORMATION
  Report Type: Spontaneous
  Country: US (occurrence: US)
  Receive Date: 20190418
  Receipt Date: 20190418
  Transmission Date: 20190711
  Serious: Yes (Hospitalization)
  Sender: FDA-Public Use
  Company Number: None

PATIENT
  Age: 54 Year
  Sex: Male
  Weight: 90.6 kg

DRUGS (4)
  1. TAXOL [Suspect]
     Active Substance: PACLITAXEL
     Dates: end: 20190308
  2. CISPLATIN. [Suspect]
     Active Substance: CISPLATIN
     Dates: end: 20190311
  3. NEULASTA [Suspect]
     Active Substance: PEGFILGRASTIM
     Dates: end: 20190312
  4. IFOSFAMIDE. [Suspect]
     Active Substance: IFOSFAMIDE
     Dates: end: 20190312

REACTIONS (5)
  - Diarrhoea [None]
  - Fatigue [None]
  - Nausea [None]
  - Urinary tract infection [None]
  - Clostridium difficile infection [None]

NARRATIVE: CASE EVENT DATE: 20190316
